FAERS Safety Report 14560474 (Version 2)
Quarter: 2018Q1

REPORT INFORMATION
  Report Type: Report from Study
  Country: None (occurrence: CA)
  Receive Date: 20180222
  Receipt Date: 20180303
  Transmission Date: 20180509
  Serious: Yes (Hospitalization, Other)
  Sender: FDA-Public Use
  Company Number: CA-ABBVIE-18K-028-2265407-00

PATIENT
  Age: 35 Year
  Sex: Male

DRUGS (3)
  1. HUMIRA [Suspect]
     Active Substance: ADALIMUMAB
     Indication: CROHN^S DISEASE
     Route: 058
     Dates: start: 20160112, end: 2018
  2. CLONAZEPAM. [Concomitant]
     Active Substance: CLONAZEPAM
     Indication: MENTAL DISORDER
     Route: 048
  3. CLOZAPINE. [Concomitant]
     Active Substance: CLOZAPINE
     Indication: MENTAL DISORDER
     Route: 048

REACTIONS (11)
  - Fatigue [Not Recovered/Not Resolved]
  - Eosinophilia [Unknown]
  - Secretion discharge [Unknown]
  - Muscle spasms [Recovering/Resolving]
  - Fall [Recovered/Resolved]
  - Oesophageal motility disorder [Unknown]
  - Hypophagia [Not Recovered/Not Resolved]
  - Dysphagia [Unknown]
  - Loss of consciousness [Recovered/Resolved]
  - Oesophageal spasm [Unknown]
  - Diarrhoea [Recovering/Resolving]

NARRATIVE: CASE EVENT DATE: 20180217
